FAERS Safety Report 4302940-0 (Version None)
Quarter: 2004Q1

REPORT INFORMATION
  Report Type: 
  Country: None (occurrence: None)
  Receive Date: 20040126
  Receipt Date: 20030925
  Transmission Date: 20041129
  Serious: No
  Sender: FDA-Public Use
  Company Number: USA030948253

PATIENT
  Age: 15 Year
  Sex: Male
  Weight: 70 kg

DRUGS (1)
  1. STRATTERA [Suspect]
     Dosage: 80 MG/DAY
     Dates: start: 20030902

REACTIONS (4)
  - AGGRESSION [None]
  - BELLIGERENCE [None]
  - HEADACHE [None]
  - MOOD SWINGS [None]
